FAERS Safety Report 4276218-8 (Version None)
Quarter: 2004Q1

REPORT INFORMATION
  Report Type: 
  Country: None (occurrence: None)
  Receive Date: 20040121
  Receipt Date: 20030603
  Transmission Date: 20041129
  Serious: Yes (Hospitalization)
  Sender: FDA-Public Use
  Company Number: US-GLAXOSMITHKLINE-A0410738A

PATIENT
  Age: 53 Year
  Sex: Male

DRUGS (2)
  1. ZIAGEN [Suspect]
     Indication: HIV INFECTION
     Route: 048
  2. VIRAMUNE [Concomitant]

REACTIONS (9)
  - BLOOD PRESSURE DECREASED [None]
  - BODY TEMPERATURE INCREASED [None]
  - EYE DISCHARGE [None]
  - GINGIVITIS [None]
  - PHARYNGITIS [None]
  - RASH MACULO-PAPULAR [None]
  - STEVENS-JOHNSON SYNDROME [None]
  - TONSILLITIS [None]
  - VISUAL DISTURBANCE [None]
